FAERS Safety Report 15703948 (Version 2)
Quarter: 2019Q1

REPORT INFORMATION
  Report Type: Spontaneous
  Country: JP (occurrence: JP)
  Receive Date: 20181210
  Receipt Date: 20190207
  Transmission Date: 20190417
  Serious: Yes (Hospitalization)
  Sender: FDA-Public Use
  Company Number: JP-TEVA-2018-JP-985682

PATIENT
  Age: 54 Year
  Sex: Male

DRUGS (5)
  1. NOURIAST [Concomitant]
     Active Substance: ISTRADEFYLLINE
     Route: 065
  2. LEVODOPA [Concomitant]
     Active Substance: LEVODOPA
     Route: 065
  3. NEUPRO [Concomitant]
     Active Substance: ROTIGOTINE
  4. AZILECT [Suspect]
     Active Substance: RASAGILINE MESYLATE
     Indication: PARKINSON^S DISEASE
     Dosage: 1 MILLIGRAM DAILY;
     Route: 048
     Dates: start: 20181109, end: 20181126
  5. AZILECT [Suspect]
     Active Substance: RASAGILINE MESYLATE
     Route: 048

REACTIONS (1)
  - Rapid eye movement sleep behaviour disorder [Recovered/Resolved]

NARRATIVE: CASE EVENT DATE: 20181114
